FAERS Safety Report 13893868 (Version 1)
Quarter: 2017Q3

REPORT INFORMATION
  Report Type: Spontaneous
  Country: US (occurrence: US)
  Receive Date: 20170822
  Receipt Date: 20170822
  Transmission Date: 20171127
  Serious: No
  Sender: FDA-Public Use
  Company Number: US-BAYER-2017-159902

PATIENT
  Sex: Female

DRUGS (4)
  1. GENERIC PMS STUDY FOR INTERFERON BETA - 1B (250?G) [Suspect]
     Active Substance: INTERFERON BETA-1B
     Indication: MULTIPLE SCLEROSIS
     Dosage: 0.25 ML, QOD (1-2 WEEKS)
     Route: 058
  2. GENERIC PMS STUDY FOR INTERFERON BETA - 1B (250?G) [Suspect]
     Active Substance: INTERFERON BETA-1B
     Indication: MULTIPLE SCLEROSIS
     Dosage: 0.75 ML, QOD (5-6 WEEKS)
     Route: 058
  3. GENERIC PMS STUDY FOR INTERFERON BETA - 1B (250?G) [Suspect]
     Active Substance: INTERFERON BETA-1B
     Indication: MULTIPLE SCLEROSIS
     Dosage: 1 ML, QOD (7+WEEKS)
     Route: 058
  4. GENERIC PMS STUDY FOR INTERFERON BETA - 1B (250?G) [Suspect]
     Active Substance: INTERFERON BETA-1B
     Indication: MULTIPLE SCLEROSIS
     Dosage: 0.5 ML, QOD (3-4 WEEKS)
     Route: 058

REACTIONS (2)
  - Headache [Not Recovered/Not Resolved]
  - Pyrexia [Not Recovered/Not Resolved]
